FAERS Safety Report 10281378 (Version 1)
Quarter: 2014Q3

REPORT INFORMATION
  Report Type: Spontaneous
  Country: ES (occurrence: ES)
  Receive Date: 20140707
  Receipt Date: 20140707
  Transmission Date: 20150326
  Serious: Yes (Other)
  Sender: FDA-Public Use
  Company Number: ES-TEVA-491797ISR

PATIENT
  Age: 19 Year
  Sex: Female

DRUGS (2)
  1. DEXKETOPROFENO RATIOPHARM 25 MG COMPRIMIDOS RECUBIERTOS CON PELICULA E [Suspect]
     Active Substance: DEXKETOPROFEN
     Indication: INFLAMMATION
     Dosage: 75 MILLIGRAM DAILY;
     Route: 048
     Dates: start: 20140525, end: 20140606
  2. LEVONORGESTREL / ETINILESTRADIOL STADA GENERICOS 0.1 MG/0.02 MG COMPRI [Concomitant]
     Active Substance: ETHINYL ESTRADIOL\LEVONORGESTREL
     Indication: DYSMENORRHOEA
     Dosage: 1 DOSAGE FORMS DAILY; 1 DOSAGE FORM = LEVONORGESTREL 0.1 MG + ETHINYL ESTRADIOL 0.02 MG
     Route: 048
     Dates: start: 20130901

REACTIONS (1)
  - Glaucoma [Recovering/Resolving]

NARRATIVE: CASE EVENT DATE: 20140607
